FAERS Safety Report 10946968 (Version 1)
Quarter: 2015Q1

REPORT INFORMATION
  Report Type: Spontaneous
  Country: US (occurrence: US)
  Receive Date: 20150323
  Receipt Date: 20150323
  Transmission Date: 20150721
  Serious: Yes (Other)
  Sender: FDA-Public Use
  Company Number: US-BAYER-2015-012265

PATIENT
  Sex: Female

DRUGS (1)
  1. ALKA-SELTZER LEMON LIME [Suspect]
     Active Substance: ANHYDROUS CITRIC ACID\ASPIRIN\SODIUM BICARBONATE
     Dosage: UNK

REACTIONS (3)
  - Malaise [None]
  - Loss of consciousness [None]
  - Anxiety [None]
